FAERS Safety Report 20862111 (Version 3)
Quarter: 2023Q1

REPORT INFORMATION
  Report Type: Spontaneous
  Country: AU (occurrence: AU)
  Receive Date: 20220523
  Receipt Date: 20230215
  Transmission Date: 20230417
  Serious: Yes (Life-Threatening, Other)
  Sender: FDA-Public Use
  Company Number: AU-PFIZER INC-202200708532

PATIENT
  Sex: Male

DRUGS (2)
  1. MIDAZOLAM HYDROCHLORIDE [Suspect]
     Active Substance: MIDAZOLAM HYDROCHLORIDE
     Dosage: 5MG/1ML, PATIENT RECEIVED 5ML
  2. METOCLOPRAMIDE [Suspect]
     Active Substance: METOCLOPRAMIDE
     Dosage: STRENGTH 10MG/2ML

REACTIONS (3)
  - Wrong product administered [Unknown]
  - Accidental overdose [Recovered/Resolved]
  - Cardiac arrest [Recovered/Resolved]
